FAERS Safety Report 25423295 (Version 1)
Quarter: 2025Q2

REPORT INFORMATION
  Report Type: Spontaneous
  Country: US (occurrence: None)
  Receive Date: 20250610
  Receipt Date: 20250610
  Transmission Date: 20250716
  Serious: Yes (Other)
  Sender: FDA-CTU
  Company Number: None

PATIENT
  Age: 35 Year
  Sex: Female
  Weight: 67.5 kg

DRUGS (1)
  1. ESCITALOPRAM OXALATE [Suspect]
     Active Substance: ESCITALOPRAM OXALATE
     Indication: Anxiety
     Dates: start: 20160601, end: 20210801

REACTIONS (16)
  - Therapy change [None]
  - Lethargy [None]
  - Blunted affect [None]
  - Diarrhoea [None]
  - Decreased appetite [None]
  - Anxiety [None]
  - Panic attack [None]
  - Insomnia [None]
  - Heart rate increased [None]
  - Suicidal ideation [None]
  - Dissociation [None]
  - Depersonalisation/derealisation disorder [None]
  - Tongue coated [None]
  - Dysgeusia [None]
  - Photophobia [None]
  - Hyperacusis [None]

NARRATIVE: CASE EVENT DATE: 20210801
